FAERS Safety Report 7413993-5 (Version None)
Quarter: 2011Q2

REPORT INFORMATION
  Report Type: 
  Country: None (occurrence: None)
  Receive Date: 20110414
  Receipt Date: 20110404
  Transmission Date: 20111010
  Serious: No
  Sender: FDA-Public Use
  Company Number: US-BIOGENIDEC-2011BI012874

PATIENT
  Age: 50 Year
  Sex: Female

DRUGS (2)
  1. STEROIDS [Concomitant]
  2. TYSABRI [Suspect]
     Indication: MULTIPLE SCLEROSIS
     Route: 042
     Dates: start: 20060801

REACTIONS (9)
  - PYREXIA [None]
  - SINUS DISORDER [None]
  - OROPHARYNGEAL PAIN [None]
  - NASOPHARYNGITIS [None]
  - PAIN [None]
  - PHARYNGITIS [None]
  - MUSCULAR WEAKNESS [None]
  - MALAISE [None]
  - ARTHRALGIA [None]
